FAERS Safety Report 13355369 (Version 2)
Quarter: 2017Q2

REPORT INFORMATION
  Report Type: Spontaneous
  Country: US (occurrence: US)
  Receive Date: 20170321
  Receipt Date: 20170504
  Transmission Date: 20170830
  Serious: No
  Sender: FDA-Public Use
  Company Number: US-BAYER-2017-053121

PATIENT
  Sex: Female

DRUGS (1)
  1. ESTRADIOL. [Suspect]
     Active Substance: ESTRADIOL
     Dosage: UNK UNK, OW
     Route: 062
     Dates: start: 2016

REACTIONS (8)
  - Pruritus [None]
  - Drug effect decreased [Not Recovered/Not Resolved]
  - Product adhesion issue [None]
  - Rash [Recovered/Resolved]
  - Application site erythema [Recovered/Resolved]
  - Urticaria [Recovered/Resolved]
  - Mood altered [Not Recovered/Not Resolved]
  - Discomfort [None]

NARRATIVE: CASE EVENT DATE: 2016
